FAERS Safety Report 8895959 (Version 2)
Quarter: 2015Q2

REPORT INFORMATION
  Report Type: Report from Study
  Country: US (occurrence: US)
  Receive Date: 20121108
  Receipt Date: 20150411
  Transmission Date: 20150821
  Serious: Yes (Death)
  Sender: FDA-Public Use
  Company Number: US-ROCHE-1104215

PATIENT
  Sex: Female

DRUGS (11)
  1. VINCRISTINE [Concomitant]
     Active Substance: VINCRISTINE
     Route: 042
  2. RITUXAN [Suspect]
     Active Substance: RITUXIMAB
     Indication: OFF LABEL USE
  3. BENADRYL [Concomitant]
     Active Substance: DIPHENHYDRAMINE HYDROCHLORIDE
     Route: 042
  4. ZOMETA [Concomitant]
     Active Substance: ZOLEDRONIC ACID
     Route: 042
  5. ZOFRAN [Concomitant]
     Active Substance: ONDANSETRON HYDROCHLORIDE
     Route: 042
  6. DECADRON [Concomitant]
     Active Substance: DEXAMETHASONE
     Route: 042
  7. ADRIAMYCIN [Concomitant]
     Active Substance: DOXORUBICIN HYDROCHLORIDE
     Route: 042
  8. LORTAB (UNITED STATES) [Concomitant]
     Indication: PAIN
  9. RITUXAN [Suspect]
     Active Substance: RITUXIMAB
     Indication: ANAPLASTIC LARGE-CELL LYMPHOMA
     Route: 042
     Dates: start: 20100303
  10. TYLENOL [Concomitant]
     Active Substance: ACETAMINOPHEN
     Route: 048
  11. CYTOXAN [Concomitant]
     Active Substance: CYCLOPHOSPHAMIDE
     Route: 042

REACTIONS (3)
  - Pain [Unknown]
  - Death [Fatal]
  - Fatigue [Unknown]
